FAERS Safety Report 18802835 (Version 1)
Quarter: 2021Q1

REPORT INFORMATION
  Report Type: Spontaneous
  Country: CA (occurrence: CA)
  Receive Date: 20210129
  Receipt Date: 20210129
  Transmission Date: 20210419
  Serious: Yes (Other)
  Sender: FDA-Public Use
  Company Number: CA-AUROBINDO-AUR-APL-2021-002928

PATIENT
  Age: 68 Year
  Sex: Male

DRUGS (2)
  1. EZETIMIBE TABLETS [Suspect]
     Active Substance: EZETIMIBE
     Indication: LOW DENSITY LIPOPROTEIN
     Dosage: UNK
     Route: 065
  2. ZOCOR [Suspect]
     Active Substance: SIMVASTATIN
     Indication: LOW DENSITY LIPOPROTEIN
     Dosage: UNK
     Route: 065

REACTIONS (3)
  - Myocardial infarction [Unknown]
  - Product dose omission issue [Unknown]
  - Drug ineffective [Unknown]
